FAERS Safety Report 7009837-6 (Version None)
Quarter: 2010Q3

REPORT INFORMATION
  Report Type: 
  Country: None (occurrence: None)
  Receive Date: 20100923
  Receipt Date: 20100913
  Transmission Date: 20110219
  Serious: Yes (Other)
  Sender: FDA-Public Use
  Company Number: US-JNJFOC-20100904605

PATIENT
  Sex: Female
  Weight: 74.84 kg

DRUGS (3)
  1. REMICADE [Suspect]
     Indication: RHEUMATOID ARTHRITIS
  2. REMICADE [Suspect]
  3. REMICADE [Suspect]

REACTIONS (4)
  - CARDIAC VALVE DISEASE [None]
  - MYOCARDIAL ISCHAEMIA [None]
  - ORAL HERPES [None]
  - TACHYCARDIA [None]
